FAERS Safety Report 8833412 (Version 1)
Quarter: 2012Q4

REPORT INFORMATION
  Report Type: 
  Country: FR (occurrence: FR)
  Receive Date: 20121010
  Receipt Date: 20121010
  Transmission Date: 20130627
  Serious: Yes (Hospitalization)
  Sender: FDA-Public Use
  Company Number: FR-PFIZER INC-2012246921

PATIENT
  Age: 82 Year
  Sex: Male

DRUGS (12)
  1. TRIFLUCAN [Suspect]
     Indication: CANDIDIASIS
     Dosage: 600 mg, 1x/day
     Route: 048
     Dates: start: 20120813, end: 20120827
  2. TRIFLUCAN [Suspect]
     Indication: CANDIDIASIS
  3. TRIATEC [Suspect]
     Indication: HYPERTENSION
     Dosage: 7.5 mg, 1x/day
     Route: 048
     Dates: end: 20120827
  4. RIFADINE [Suspect]
     Indication: STAPHYLOCOCCAL MEDIASTINITIS
     Dosage: 1200 mg, 1x/day
     Route: 048
     Dates: start: 20120801, end: 20120827
  5. IMOVANE [Concomitant]
  6. COUMADINE [Concomitant]
  7. DIFFU K [Concomitant]
     Dosage: UNK
  8. CORDARONE [Concomitant]
  9. SPIRIVA [Concomitant]
  10. SYMBICORT [Concomitant]
  11. PERMIXON [Concomitant]
     Dosage: UNK
  12. XYZAL [Concomitant]

REACTIONS (1)
  - Hepatocellular injury [Recovering/Resolving]
